FAERS Safety Report 7498734-8 (Version None)
Quarter: 2011Q2

REPORT INFORMATION
  Report Type: 
  Country: None (occurrence: None)
  Receive Date: 20110524
  Receipt Date: 20110516
  Transmission Date: 20111010
  Serious: Yes (Other)
  Sender: FDA-Public Use
  Company Number: CA-ELI_LILLY_AND_COMPANY-CA201105004246

PATIENT
  Sex: Male
  Weight: 74.84 kg

DRUGS (10)
  1. HALOPERIDOL [Concomitant]
  2. ZYPREXA [Suspect]
     Dosage: 5 MG, QD
  3. ZYPREXA [Suspect]
     Indication: SCHIZOPHRENIA
     Dosage: 10 MG, QD
  4. ATIVAN [Concomitant]
  5. FLUANXOL [Concomitant]
  6. BENZTROPINE MESYLATE [Concomitant]
  7. ZYPREXA ZYDIS [Suspect]
     Indication: SCHIZOPHRENIA
     Dosage: 15 MG, QD
  8. PAXIL [Concomitant]
  9. SERAX [Concomitant]
  10. METHADONE HCL [Concomitant]

REACTIONS (8)
  - TOOTH ABSCESS [None]
  - HYPERTENSION [None]
  - PLATELET COUNT DECREASED [None]
  - CELLULITIS [None]
  - NARCOLEPSY [None]
  - DIABETES MELLITUS [None]
  - WEIGHT INCREASED [None]
  - HEPATOSPLENOMEGALY [None]
